FAERS Safety Report 20684051 (Version 2)
Quarter: 2022Q2

REPORT INFORMATION
  Report Type: Report from Study
  Country: CO (occurrence: CO)
  Receive Date: 20220407
  Receipt Date: 20220613
  Transmission Date: 20220720
  Serious: Yes (Hospitalization)
  Sender: FDA-Public Use
  Company Number: CO-NOVARTISPH-NVSC2022CO076545

PATIENT
  Age: 54 Year
  Sex: Male
  Weight: 58 kg

DRUGS (1)
  1. COSENTYX [Suspect]
     Active Substance: SECUKINUMAB
     Indication: Psoriasis
     Dosage: 300 MG, QMO
     Route: 058
     Dates: start: 20210105

REACTIONS (7)
  - Pyrexia [Unknown]
  - Headache [Unknown]
  - Bone pain [Unknown]
  - Dysuria [Not Recovered/Not Resolved]
  - Prostatitis [Unknown]
  - Dengue fever [Unknown]
  - Product availability issue [Unknown]

NARRATIVE: CASE EVENT DATE: 20220226
